FAERS Safety Report 9198554 (Version 1)
Quarter: 2013Q1

REPORT INFORMATION
  Report Type: Spontaneous
  Country: BR (occurrence: BR)
  Receive Date: 20130329
  Receipt Date: 20130329
  Transmission Date: 20140127
  Serious: Yes (Hospitalization)
  Sender: FDA-Public Use
  Company Number: BR-ELI_LILLY_AND_COMPANY-BR201303007293

PATIENT
  Age: 3 Year
  Sex: Male
  Weight: 17 kg

DRUGS (2)
  1. HUMALOG LISPRO [Suspect]
     Indication: DIABETES MELLITUS
     Dosage: 10 IU, QD
     Route: 058
     Dates: start: 20120125
  2. LANTUS [Concomitant]
     Dosage: 5 IU, EACH EVENING
     Route: 065
     Dates: start: 2012

REACTIONS (1)
  - Sinusitis [Unknown]
